FAERS Safety Report 22242427 (Version 1)
Quarter: 2023Q2

REPORT INFORMATION
  Report Type: Spontaneous
  Country: GB (occurrence: None)
  Receive Date: 20230422
  Receipt Date: 20230422
  Transmission Date: 20230722
  Serious: Yes (Other)
  Sender: FDA-Public Use
  Company Number: 2023A091392

PATIENT
  Age: 50 Year
  Sex: Male
  Weight: 127 kg

DRUGS (11)
  1. DAPAGLIFLOZIN [Suspect]
     Active Substance: DAPAGLIFLOZIN
     Dates: start: 20230316
  2. AMLODIPINE [Concomitant]
     Active Substance: AMLODIPINE BESYLATE
     Dates: start: 20220316
  3. ATORVASTATIN [Concomitant]
     Active Substance: ATORVASTATIN
     Dates: start: 20220316
  4. BISOPROLOL [Concomitant]
     Active Substance: BISOPROLOL
     Dates: start: 20220316
  5. CODEINE PHOSPHATE [Concomitant]
     Active Substance: CODEINE PHOSPHATE
     Dosage: TAKE ONE OR TWO EVERY FOUR TO SIX HOURS...
     Dates: start: 20230320, end: 20230403
  6. DOXYCYCLINE [Concomitant]
     Active Substance: DOXYCYCLINE
     Indication: Cellulitis
     Dates: start: 20230320, end: 20230327
  7. EPLERENONE [Concomitant]
     Active Substance: EPLERENONE
     Dates: start: 20220316
  8. LEVOFLOXACIN [Concomitant]
     Active Substance: LEVOFLOXACIN
     Dosage: FOR 10 DAYS AS PER UROLOGY,
     Dates: start: 20230324, end: 20230403
  9. SACUBITRIL [Concomitant]
     Active Substance: SACUBITRIL
     Dates: start: 20220316
  10. SILDENAFIL [Concomitant]
     Active Substance: SILDENAFIL
     Dosage: AS DIRECTED,
     Dates: start: 20190606
  11. METFORMIN HYDROCHLORIDE [Concomitant]
     Active Substance: METFORMIN HYDROCHLORIDE
     Dates: start: 20220316

REACTIONS (2)
  - Scrotal oedema [Recovering/Resolving]
  - Fournier^s gangrene [Recovering/Resolving]

NARRATIVE: CASE EVENT DATE: 20230327
